FAERS Safety Report 13844195 (Version 3)
Quarter: 2017Q3

REPORT INFORMATION
  Report Type: Spontaneous
  Country: US (occurrence: US)
  Receive Date: 20170808
  Receipt Date: 20170914
  Transmission Date: 20171127
  Serious: No
  Sender: FDA-Public Use
  Company Number: US-PFIZER INC-2017340730

PATIENT
  Age: 45 Year
  Sex: Female
  Weight: 80 kg

DRUGS (2)
  1. PREMARIN [Suspect]
     Active Substance: ESTROGENS, CONJUGATED
     Indication: VULVOVAGINAL DRYNESS
     Dosage: 1.0 (OR 1.5) TWO TO THREE TIMES WEEKLY VAGINALLY AS NEEDED
     Route: 067
  2. PREMARIN [Suspect]
     Active Substance: ESTROGENS, CONJUGATED
     Indication: VULVOVAGINAL PRURITUS

REACTIONS (5)
  - Feeling abnormal [Unknown]
  - Product use issue [Unknown]
  - Wound haemorrhage [Unknown]
  - Depression [Unknown]
  - Crying [Unknown]
